FAERS Safety Report 10720397 (Version 1)
Quarter: 2015Q1

REPORT INFORMATION
  Report Type: Spontaneous
  Country: US (occurrence: US)
  Receive Date: 20150119
  Receipt Date: 20150119
  Transmission Date: 20150721
  Serious: No
  Sender: FDA-Public Use
  Company Number: US-UNITED THERAPEUTICS-UNT-2014-007558

PATIENT
  Age: 64 Year
  Sex: Male
  Weight: 74.83 kg

DRUGS (1)
  1. REMODULIN [Suspect]
     Active Substance: TREPROSTINIL
     Indication: PULMONARY ARTERIAL HYPERTENSION
     Dosage: 0.011 ?G/KG/MIN, CONTINUING
     Route: 041
     Dates: start: 20140904

REACTIONS (2)
  - Pain in jaw [Unknown]
  - Seasonal allergy [Unknown]

NARRATIVE: CASE EVENT DATE: 201409
